FAERS Safety Report 7381326-9 (Version None)
Quarter: 2011Q1

REPORT INFORMATION
  Report Type: 
  Country: None (occurrence: None)
  Receive Date: 20110323
  Receipt Date: 20110323
  Transmission Date: 20110831
  Serious: Yes (Hospitalization)
  Sender: FDA-Public Use
  Company Number: None

PATIENT
  Age: 69 Year
  Sex: Male
  Weight: 103.8 kg

DRUGS (11)
  1. LORATADINE [Concomitant]
  2. GEMCITABINE [Suspect]
     Indication: NON-SMALL CELL LUNG CANCER
     Dosage: 900MG/M2, IV DAYS1+8 Q3W
     Route: 042
     Dates: start: 20110308
  3. ADVAIR HFA [Concomitant]
  4. LOPERAMIDE HCL [Concomitant]
  5. DOCETAXEL [Suspect]
     Indication: NON-SMALL CELL LUNG CANCER
     Dosage: 75 MG/M2, IV DAY 1 Q3W
     Route: 042
     Dates: start: 20110301
  6. DEXAMETHASONE [Concomitant]
  7. NEULASTA [Concomitant]
  8. HYCODAN [Concomitant]
  9. BEVACIZUMAB [Suspect]
     Indication: NON-SMALL CELL LUNG CANCER
     Dosage: 15MG/KG, IV DAY 1 Q3W
     Route: 042
     Dates: start: 20110302
  10. AVODART [Concomitant]
  11. PROCHLOPERAZINE [Concomitant]

REACTIONS (1)
  - PNEUMONIA [None]
